FAERS Safety Report 11761658 (Version 1)
Quarter: 2015Q4

REPORT INFORMATION
  Report Type: Spontaneous
  Country: US (occurrence: US)
  Receive Date: 20151120
  Receipt Date: 20151120
  Transmission Date: 20160304
  Serious: Yes (Hospitalization, Other)
  Sender: FDA-Public Use
  Company Number: US-ASTRAZENECA-2015SF10856

PATIENT
  Age: 64 Year
  Sex: Female
  Weight: 49.9 kg

DRUGS (12)
  1. AMITIZA [Concomitant]
     Active Substance: LUBIPROSTONE
     Indication: ABDOMINAL DISCOMFORT
     Route: 048
  2. AMITIZA [Concomitant]
     Active Substance: LUBIPROSTONE
     Indication: ABDOMINAL DISCOMFORT
     Route: 048
     Dates: start: 2012, end: 201401
  3. PRILOSEC [Suspect]
     Active Substance: OMEPRAZOLE MAGNESIUM
     Indication: GASTROOESOPHAGEAL REFLUX DISEASE
     Route: 048
     Dates: start: 2014
  4. MAALOX ANTACID [Concomitant]
     Active Substance: ALUMINUM HYDROXIDE\DIMETHICONE\MAGNESIUM HYDROXIDE
     Indication: GASTROOESOPHAGEAL REFLUX DISEASE
     Dosage: DAILY
     Route: 048
     Dates: start: 1991, end: 2013
  5. NEXIUM [Suspect]
     Active Substance: ESOMEPRAZOLE MAGNESIUM
     Indication: GASTROOESOPHAGEAL REFLUX DISEASE
     Route: 048
     Dates: start: 2007, end: 2007
  6. PRILOSEC OTC [Suspect]
     Active Substance: OMEPRAZOLE MAGNESIUM
     Indication: GASTROOESOPHAGEAL REFLUX DISEASE
     Route: 048
     Dates: start: 201501, end: 201501
  7. MICARDIS [Concomitant]
     Active Substance: TELMISARTAN
     Indication: BLOOD PRESSURE ABNORMAL
     Route: 048
     Dates: start: 2009
  8. PRILOSEC [Suspect]
     Active Substance: OMEPRAZOLE MAGNESIUM
     Indication: GASTROOESOPHAGEAL REFLUX DISEASE
     Route: 048
     Dates: start: 199109, end: 2014
  9. CALCIUM [Suspect]
     Active Substance: CALCIUM
     Route: 065
  10. VITAMIN D [Concomitant]
     Active Substance: CHOLECALCIFEROL
     Indication: VITAMIN D ABNORMAL
     Dates: start: 201506
  11. CLONIDINE. [Suspect]
     Active Substance: CLONIDINE
     Route: 065
  12. VALIUM [Concomitant]
     Active Substance: DIAZEPAM
     Indication: BLOOD PRESSURE ABNORMAL
     Route: 048
     Dates: start: 201501

REACTIONS (25)
  - Dizziness [Unknown]
  - Dysuria [Unknown]
  - Palpitations [Unknown]
  - Dehydration [Unknown]
  - Thyroid neoplasm [Unknown]
  - Chest pain [Unknown]
  - Aortic occlusion [Unknown]
  - Swollen tongue [Unknown]
  - Hypothyroidism [Unknown]
  - Gait disturbance [Unknown]
  - Rash generalised [Unknown]
  - Blood pressure increased [Unknown]
  - Nausea [Unknown]
  - Abdominal discomfort [Unknown]
  - Flushing [Unknown]
  - Limb discomfort [Unknown]
  - Abdominal pain upper [Unknown]
  - Drug ineffective [Unknown]
  - Arterial occlusive disease [Unknown]
  - Dyspepsia [Unknown]
  - Intentional product use issue [Unknown]
  - Hyperthyroidism [Unknown]
  - Vomiting [Unknown]
  - Diarrhoea [Unknown]
  - Feeling jittery [Unknown]

NARRATIVE: CASE EVENT DATE: 1999
